FAERS Safety Report 12377727 (Version 1)
Quarter: 2016Q2

REPORT INFORMATION
  Report Type: Report from Study
  Country: US (occurrence: US)
  Receive Date: 20160517
  Receipt Date: 20160517
  Transmission Date: 20160815
  Serious: No
  Sender: FDA-Public Use
  Company Number: US-MALLINCKRODT-T201506124

PATIENT
  Age: 59 Year
  Sex: Female

DRUGS (1)
  1. REPOSITORY CORTICOTROPIN INJECTION [Suspect]
     Active Substance: CORTICOTROPIN
     Indication: LUPUS NEPHRITIS
     Dosage: 80 UNITS TWICE WKLY
     Route: 058
     Dates: start: 20151022, end: 201512

REACTIONS (3)
  - Stomatitis [Recovering/Resolving]
  - Glossitis [Recovering/Resolving]
  - Dysgeusia [Recovering/Resolving]

NARRATIVE: CASE EVENT DATE: 20151215
